FAERS Safety Report 6493341-8 (Version None)
Quarter: 2009Q4

REPORT INFORMATION
  Report Type: 
  Country: None (occurrence: None)
  Receive Date: 20091209
  Receipt Date: 20091126
  Transmission Date: 20100525
  Serious: Yes (Death)
  Sender: FDA-Public Use
  Company Number: 445664

PATIENT
  Age: 79 Year

DRUGS (2)
  1. HYDROMORPHONE [Suspect]
     Indication: PAIN
     Dosage: .75 MG, INTRATHECAL
     Route: 037
  2. BUPIVACAINE [Suspect]
     Indication: PAIN
     Dosage: .9 MG, INTRATHECAL
     Route: 037

REACTIONS (5)
  - ASPIRATION [None]
  - DEVICE COMPUTER ISSUE [None]
  - DRUG INTERACTION [None]
  - OVERDOSE [None]
  - RESPIRATORY ARREST [None]
